FAERS Safety Report 26214299 (Version 1)
Quarter: 2025Q4

REPORT INFORMATION
  Report Type: Report from Study
  Country: US (occurrence: US)
  Receive Date: 20251230
  Receipt Date: 20251230
  Transmission Date: 20260118
  Serious: No
  Sender: DR REDDYS
  Company Number: US-DRL-USA-USA/2025/12/019394

PATIENT
  Age: 14 Year

DRUGS (2)
  1. ZENATANE [Suspect]
     Active Substance: ISOTRETINOIN
     Indication: Product used for unknown indication
     Dosage: NDC NUMBER: 68001-653-17
     Dates: start: 20250906
  2. ZENATANE [Suspect]
     Active Substance: ISOTRETINOIN
     Dosage: NDC NUMBER: 55111-0137-81
     Dates: start: 20250906

REACTIONS (1)
  - Circumstance or information capable of leading to device use error [Unknown]

NARRATIVE: CASE EVENT DATE: 20251209
